FAERS Safety Report 7483299-7 (Version None)
Quarter: 2011Q2

REPORT INFORMATION
  Report Type: 
  Country: None (occurrence: None)
  Receive Date: 20110509
  Receipt Date: 20110502
  Transmission Date: 20111010
  Serious: Yes (Death, Hospitalization, Disabling)
  Sender: FDA-Public Use
  Company Number: 2009AC000156

PATIENT
  Age: 66 Year
  Sex: Female

DRUGS (42)
  1. DIGOXIN [Suspect]
     Indication: ATRIAL FIBRILLATION
     Dosage: 0.125 MG;QD;PO
     Route: 048
     Dates: start: 20050501
  2. NITROGLYCERIN [Concomitant]
  3. BACTRIM [Concomitant]
  4. XANAX [Concomitant]
  5. LIDODERM [Concomitant]
  6. MINOCYCLINE HCL [Concomitant]
  7. SULFAMETHOXAZOLE [Concomitant]
  8. SPIRONOLACTONE [Concomitant]
  9. LISINOPRIL [Concomitant]
  10. CLONAZEPAM [Concomitant]
  11. ALDACTONE [Concomitant]
  12. MS CONTIN [Concomitant]
  13. HYDROCODONE BITARTRATE [Concomitant]
  14. FUROSEMIDE [Concomitant]
  15. RISPERDAL [Concomitant]
  16. KLOR-CON [Concomitant]
  17. LORAZEPAM [Concomitant]
  18. MINITRAN [Interacting]
  19. COREG [Concomitant]
  20. LASIX [Concomitant]
  21. AMBIEN [Concomitant]
  22. KEFLEX [Concomitant]
  23. EXELON [Concomitant]
  24. ATIVAN [Concomitant]
  25. COLACE [Concomitant]
  26. DOPAMINE HCL [Concomitant]
  27. DIGOXIN [Suspect]
     Dosage: 0.125 MG;QD;PO
     Route: 048
     Dates: start: 20070101, end: 20070501
  28. MORPHINE [Concomitant]
  29. LORTAB [Concomitant]
  30. ALBUTEROL SULFATE AUTOHALER [Concomitant]
  31. OXYCODONE HCL [Concomitant]
  32. PREVACID [Concomitant]
  33. FOLITAB [Concomitant]
  34. BONIVA [Concomitant]
  35. LOVENOX [Concomitant]
  36. CYMBALTA [Concomitant]
  37. ZYRTEC [Concomitant]
  38. ALPRAZOLAM [Concomitant]
  39. PROTONIX [Concomitant]
  40. MORPHINE SULFATE [Concomitant]
  41. NITROGLYCERIN [Concomitant]
  42. VANCOMYCIN [Concomitant]

REACTIONS (56)
  - ASTHENIA [None]
  - MULTIPLE INJURIES [None]
  - MEDICAL DEVICE SITE REACTION [None]
  - WOUND INFECTION [None]
  - HUMERUS FRACTURE [None]
  - HAEMATOMA [None]
  - CARDIOMYOPATHY [None]
  - SYNCOPE [None]
  - CONFUSIONAL STATE [None]
  - DISORIENTATION [None]
  - FEMUR FRACTURE [None]
  - MYOCARDIAL ISCHAEMIA [None]
  - SINUS BRADYCARDIA [None]
  - ATRIAL TACHYCARDIA [None]
  - WOUND NECROSIS [None]
  - UPPER LIMB FRACTURE [None]
  - TOXICITY TO VARIOUS AGENTS [None]
  - IMPAIRED HEALING [None]
  - OSTEOPENIA [None]
  - SEPSIS [None]
  - CARDIOMEGALY [None]
  - CONGESTIVE CARDIOMYOPATHY [None]
  - DIZZINESS [None]
  - ARM AMPUTATION [None]
  - GASTRIC ULCER [None]
  - AORTIC ARTERIOSCLEROSIS [None]
  - ATRIAL FLUTTER [None]
  - DYSPNOEA EXERTIONAL [None]
  - DEMENTIA [None]
  - TACHYARRHYTHMIA [None]
  - HIP FRACTURE [None]
  - LOWER LIMB FRACTURE [None]
  - CARDIAC FAILURE CONGESTIVE [None]
  - CARDIAC MURMUR [None]
  - INCONTINENCE [None]
  - WOUND DEHISCENCE [None]
  - OSTEOPOROSIS [None]
  - VIBRATION TEST ABNORMAL [None]
  - BUNDLE BRANCH BLOCK LEFT [None]
  - CELLULITIS [None]
  - ARRHYTHMIA [None]
  - FALL [None]
  - CORONARY ARTERY DISEASE [None]
  - LEFT VENTRICULAR DYSFUNCTION [None]
  - PULMONARY HYPERTENSION [None]
  - ATRIOVENTRICULAR DISSOCIATION [None]
  - DILATATION VENTRICULAR [None]
  - JOINT DISLOCATION [None]
  - CONDUCTION DISORDER [None]
  - LIMB CRUSHING INJURY [None]
  - OEDEMA PERIPHERAL [None]
  - EPIGASTRIC DISCOMFORT [None]
  - GAIT DISTURBANCE [None]
  - MITRAL VALVE INCOMPETENCE [None]
  - TRICUSPID VALVE INCOMPETENCE [None]
  - NEUROPATHY PERIPHERAL [None]
